FAERS Safety Report 23940577 (Version 2)
Quarter: 2024Q2

REPORT INFORMATION
  Report Type: Spontaneous
  Country: CA (occurrence: CA)
  Receive Date: 20240605
  Receipt Date: 20240607
  Transmission Date: 20240716
  Serious: Yes (Other)
  Sender: FDA-Public Use
  Company Number: CA-PFIZER INC-202400181404

PATIENT

DRUGS (1)
  1. INFLECTRA [Suspect]
     Active Substance: INFLIXIMAB-DYYB
     Indication: Psoriatic arthropathy
     Dosage: 800 MG, EVERY 8 WEEKS
     Route: 042
     Dates: start: 20240408

REACTIONS (1)
  - Burns third degree [Recovering/Resolving]

NARRATIVE: CASE EVENT DATE: 20240501
